FAERS Safety Report 6065449-2 (Version None)
Quarter: 2009Q1

REPORT INFORMATION
  Report Type: 
  Country: None (occurrence: None)
  Receive Date: 20090204
  Receipt Date: 20090123
  Transmission Date: 20090719
  Serious: Yes (Other)
  Sender: FDA-Public Use
  Company Number: US-PFIZER INC-2009162099

PATIENT
  Sex: Female
  Weight: 49.887 kg

DRUGS (9)
  1. CHANTIX [Suspect]
     Indication: SMOKING CESSATION THERAPY
     Dosage: 1 MG, 2X/DAY
  2. LITHIUM CARBONATE [Concomitant]
     Indication: BIPOLAR DISORDER
     Dosage: 300 MG, 3X/DAY
  3. SEROQUEL [Concomitant]
     Indication: INSOMNIA
     Dosage: UNK
  4. DRUG, UNSPECIFIED [Concomitant]
     Indication: THYROID DISORDER
     Dosage: 75 MG, UNK
  5. SPIRIVA [Concomitant]
     Indication: DYSPNOEA
     Dosage: UNK
  6. VENTOLIN [Concomitant]
     Indication: DYSPNOEA
     Dosage: UNK
  7. SYMBICORT [Concomitant]
     Indication: DYSPNOEA
     Dosage: UNK
  8. VASOTEC [Concomitant]
     Indication: HYPERTENSION
     Dosage: UNK
  9. MULTI-VITAMINS [Concomitant]
     Dosage: UNK

REACTIONS (1)
  - PARANOIA [None]
